FAERS Safety Report 6623660-3 (Version None)
Quarter: 2010Q1

REPORT INFORMATION
  Report Type: 
  Country: None (occurrence: None)
  Receive Date: 20100310
  Receipt Date: 20091112
  Transmission Date: 20100710
  Serious: No
  Sender: FDA-Public Use
  Company Number: US-BIOGENIDEC-2009BI036673

PATIENT
  Sex: Female

DRUGS (2)
  1. AVONEX [Suspect]
     Indication: MULTIPLE SCLEROSIS
     Route: 030
     Dates: start: 20031001
  2. AVONEX [Suspect]
     Route: 030

REACTIONS (9)
  - BACK PAIN [None]
  - BALANCE DISORDER [None]
  - BLADDER DISORDER [None]
  - BLOOD CHOLESTEROL INCREASED [None]
  - COUGH [None]
  - HYPOTENSION [None]
  - HYPOTONIA [None]
  - INSOMNIA [None]
  - PAIN IN EXTREMITY [None]
